FAERS Safety Report 13447281 (Version 2)
Quarter: 2017Q2

REPORT INFORMATION
  Report Type: Spontaneous
  Country: ES (occurrence: ES)
  Receive Date: 20170417
  Receipt Date: 20170621
  Transmission Date: 20170830
  Serious: Yes (Hospitalization, Other)
  Sender: FDA-Public Use
  Company Number: ES-PFIZER INC-2017164616

PATIENT
  Age: 77 Year
  Sex: Male

DRUGS (5)
  1. METOJECT [Suspect]
     Active Substance: METHOTREXATE SODIUM
     Indication: RHEUMATOID ARTHRITIS
     Dosage: 20 MG, WEEKLY
     Route: 058
  2. METOJECT [Suspect]
     Active Substance: METHOTREXATE SODIUM
     Dosage: 15 MG, ONCE A WEEK; RAPID ESCALATION OF METHOTREXATE
     Route: 058
     Dates: start: 20150227, end: 20160708
  3. ARAVA [Suspect]
     Active Substance: LEFLUNOMIDE
     Indication: RHEUMATOID ARTHRITIS
     Dosage: 20 MG, DAILY
     Dates: start: 20160121, end: 20160708
  4. FOLIC ACID. [Concomitant]
     Active Substance: FOLIC ACID
     Indication: RHEUMATOID ARTHRITIS
     Dosage: 5 MG, WEEKLY
  5. PREDNISONE. [Concomitant]
     Active Substance: PREDNISONE
     Indication: RHEUMATOID ARTHRITIS
     Dosage: 5 MG, DAILY

REACTIONS (3)
  - Bone marrow failure [Recovering/Resolving]
  - Toxicity to various agents [Recovering/Resolving]
  - Aphthous ulcer [Recovering/Resolving]

NARRATIVE: CASE EVENT DATE: 20160708
